FAERS Safety Report 22361824 (Version 1)
Quarter: 2023Q2

REPORT INFORMATION
  Report Type: Spontaneous
  Country: US (occurrence: US)
  Receive Date: 20230524
  Receipt Date: 20230524
  Transmission Date: 20230722
  Serious: No
  Sender: FDA-Public Use
  Company Number: US-ABBVIE-5177073

PATIENT
  Sex: Female

DRUGS (1)
  1. CREON [Suspect]
     Active Substance: PANCRELIPASE AMYLASE\PANCRELIPASE LIPASE\PANCRELIPASE PROTEASE
     Indication: Pancreatic failure
     Dosage: FIRST ADMIN DATE: 17 MAY 2023
     Route: 065

REACTIONS (7)
  - Pain [Unknown]
  - Dyspepsia [Unknown]
  - Abdominal distension [Unknown]
  - Anxiety [Unknown]
  - Alopecia [Unknown]
  - Constipation [Unknown]
  - Exocrine pancreatic function test abnormal [Unknown]

NARRATIVE: CASE EVENT DATE: 20230501
